FAERS Safety Report 6253049-0 (Version None)
Quarter: 2009Q3

REPORT INFORMATION
  Report Type: 
  Country: None (occurrence: None)
  Receive Date: 20090701
  Receipt Date: 20090619
  Transmission Date: 20100115
  Serious: Yes (Other)
  Sender: FDA-Public Use
  Company Number: BE-PFIZER INC-2009214389

PATIENT
  Age: 64 Year

DRUGS (9)
  1. SUNITINIB MALATE [Suspect]
     Indication: RENAL CELL CARCINOMA
     Dosage: 50 MG, 1X/DAY
     Route: 048
     Dates: start: 20080611, end: 20080901
  2. SUNITINIB MALATE [Suspect]
     Dosage: 25 MG, 1X/DAY
     Route: 048
     Dates: start: 20080901
  3. NOVORAPID [Concomitant]
     Indication: DIABETES MELLITUS
     Dosage: UNK
     Route: 058
  4. ZANTAC [Concomitant]
     Dosage: UNK
     Route: 048
  5. ELTHYRONE [Concomitant]
     Dosage: 100 MG, 1X/DAY
     Route: 048
  6. LIPITOR [Concomitant]
     Indication: HYPERCHOLESTEROLAEMIA
     Dosage: 10 MG, 1X/DAY
     Route: 048
  7. EMCORETIC [Concomitant]
     Dosage: UNK
     Route: 048
  8. AMLODIPINE [Concomitant]
     Dosage: 5 MG, 1X/DAY
     Route: 048
  9. LORAMET [Concomitant]
     Dosage: 2 MG, 1X/DAY
     Route: 048

REACTIONS (1)
  - HYPERGLYCAEMIA [None]
